FAERS Safety Report 7590246-6 (Version None)
Quarter: 2011Q2

REPORT INFORMATION
  Report Type: 
  Country: None (occurrence: None)
  Receive Date: 20110627
  Receipt Date: 20110613
  Transmission Date: 20111010
  Serious: Yes (Hospitalization, Other)
  Sender: FDA-Public Use
  Company Number: 2011P1006571

PATIENT
  Age: 88 Year
  Sex: Female
  Weight: 49.8957 kg

DRUGS (13)
  1. MACRODANTIN [Suspect]
     Indication: URINARY TRACT INFECTION
     Dates: start: 20110513, end: 20110514
  2. WARFARIN SODIUM [Suspect]
     Indication: ATRIAL FIBRILLATION
     Dosage: 7.5 MG, QD, PO; 2.5 MG, QD, PO; 5 MG, QD, (3X/WEEK) PO ; 7.5 MG, QD (4X/WEEK), PO;  2.5 MG, HS,
     Route: 048
     Dates: start: 20110501, end: 20110519
  3. WARFARIN SODIUM [Suspect]
     Indication: ATRIAL FIBRILLATION
     Dosage: 7.5 MG, QD, PO; 2.5 MG, QD, PO; 5 MG, QD, (3X/WEEK) PO ; 7.5 MG, QD (4X/WEEK), PO;  2.5 MG, HS,
     Route: 048
     Dates: start: 20110421, end: 20110512
  4. WARFARIN SODIUM [Suspect]
     Indication: ATRIAL FIBRILLATION
     Dosage: 7.5 MG, QD, PO; 2.5 MG, QD, PO; 5 MG, QD, (3X/WEEK) PO ; 7.5 MG, QD (4X/WEEK), PO;  2.5 MG, HS,
     Route: 048
     Dates: start: 20110520
  5. WARFARIN SODIUM [Suspect]
     Indication: ATRIAL FIBRILLATION
     Dosage: 7.5 MG, QD, PO; 2.5 MG, QD, PO; 5 MG, QD, (3X/WEEK) PO ; 7.5 MG, QD (4X/WEEK), PO;  2.5 MG, HS,
     Route: 048
     Dates: start: 20110523
  6. WARFARIN SODIUM [Suspect]
     Indication: ATRIAL FIBRILLATION
     Dosage: 7.5 MG, QD, PO; 2.5 MG, QD, PO; 5 MG, QD, (3X/WEEK) PO ; 7.5 MG, QD (4X/WEEK), PO;  2.5 MG, HS,
     Route: 048
     Dates: start: 20110520
  7. DIGOXIN [Concomitant]
  8. FUROSEMIDE [Concomitant]
  9. POTASSIUM [Concomitant]
  10. OMEPRAZOLE [Concomitant]
  11. SEPTRA DS [Suspect]
     Indication: URINARY TRACT INFECTION
     Dates: start: 20110513, end: 20110513
  12. ATENOLOL [Concomitant]
  13. DILTIAZEM [Concomitant]

REACTIONS (25)
  - ANAEMIA [None]
  - DYSPEPSIA [None]
  - ARRHYTHMIA [None]
  - HAEMATURIA [None]
  - PROTHROMBIN TIME PROLONGED [None]
  - ASTHENIA [None]
  - ECCHYMOSIS [None]
  - INTERNATIONAL NORMALISED RATIO INCREASED [None]
  - CYSTITIS [None]
  - GAIT DISTURBANCE [None]
  - OVERDOSE [None]
  - STREPTOCOCCUS TEST POSITIVE [None]
  - NAUSEA [None]
  - WEIGHT DECREASED [None]
  - MIDDLE INSOMNIA [None]
  - CONTUSION [None]
  - URINARY RETENTION [None]
  - SKIN DISCOLOURATION [None]
  - HYPONATRAEMIA [None]
  - PRESYNCOPE [None]
  - ACTIVATED PARTIAL THROMBOPLASTIN TIME PROLONGED [None]
  - VOMITING [None]
  - ABDOMINAL DISCOMFORT [None]
  - DECREASED APPETITE [None]
  - MUSCLE ATROPHY [None]
